FAERS Safety Report 6263711-1 (Version None)
Quarter: 2009Q3

REPORT INFORMATION
  Report Type: 
  Country: None (occurrence: None)
  Receive Date: 20090710
  Receipt Date: 20070516
  Transmission Date: 20100115
  Serious: Yes (Hospitalization)
  Sender: FDA-Public Use
  Company Number: US-ASTRAZENECA-2006UW10874

PATIENT
  Age: 12552 Day
  Sex: Female
  Weight: 127 kg

DRUGS (25)
  1. SEROQUEL [Suspect]
     Indication: ANXIETY
     Route: 048
     Dates: start: 19960401, end: 20030101
  2. SEROQUEL [Suspect]
     Indication: BIPOLAR I DISORDER
     Route: 048
     Dates: start: 19960401, end: 20030101
  3. SEROQUEL [Suspect]
     Indication: PSYCHOTIC BEHAVIOUR
     Route: 048
     Dates: start: 19960401, end: 20030101
  4. SEROQUEL [Suspect]
     Dosage: 300-400 MG
     Route: 048
     Dates: start: 19990521
  5. SEROQUEL [Suspect]
     Dosage: 300-400 MG
     Route: 048
     Dates: start: 19990521
  6. SEROQUEL [Suspect]
     Dosage: 300-400 MG
     Route: 048
     Dates: start: 19990521
  7. RISPERDAL [Concomitant]
  8. NAVANE [Concomitant]
     Dates: start: 19960401
  9. DICYCLOMINE [Concomitant]
     Route: 048
  10. PROPOX [Concomitant]
     Route: 048
  11. PROMETHAZINE [Concomitant]
     Route: 048
  12. PHENAZOPYRIDINE HCL TAB [Concomitant]
     Route: 048
  13. SULFATRIM-DS [Concomitant]
     Route: 048
  14. GLUCOPHAGE [Concomitant]
     Dosage: TOTAL DAILY DOSE DAILY 500 MG
     Route: 048
  15. VEETIDS [Concomitant]
     Route: 048
  16. EFFEXOR [Concomitant]
     Route: 048
  17. GLUCOTROL [Concomitant]
     Route: 048
  18. VICODIN [Concomitant]
     Route: 048
  19. PAXIL [Concomitant]
     Route: 048
  20. ASPIRIN [Concomitant]
     Route: 048
  21. BENADRYL [Concomitant]
     Dosage: 25 MG
     Route: 048
  22. NEURONTIN [Concomitant]
     Route: 048
  23. FLAGYL [Concomitant]
     Route: 048
  24. CIPRO [Concomitant]
     Route: 048
  25. CARAFATE [Concomitant]
     Route: 048

REACTIONS (3)
  - DIABETES MELLITUS [None]
  - DIABETIC NEUROPATHY [None]
  - HYPERGLYCAEMIA [None]
